FAERS Safety Report 5286746-4 (Version None)
Quarter: 2007Q1

REPORT INFORMATION
  Report Type: 
  Country: None (occurrence: None)
  Receive Date: 20070116
  Receipt Date: 20061112
  Transmission Date: 20070707
  Serious: No
  Sender: FDA-Public Use
  Company Number: 2006SP004039

PATIENT
  Age: 43 Year
  Sex: Female
  Weight: 74.8435 kg

DRUGS (4)
  1. LUNESTA [Suspect]
     Indication: INSOMNIA
     Dosage: 1 MG; PRN;ORAL
     Route: 048
     Dates: start: 20061101, end: 20061109
  2. SYNTHROID [Concomitant]
  3. CORTICOSTEROIDS [Concomitant]
  4. AMBIEN [Concomitant]

REACTIONS (1)
  - DYSGEUSIA [None]
